FAERS Safety Report 7656766-0 (Version None)
Quarter: 2011Q3

REPORT INFORMATION
  Report Type: 
  Country: None (occurrence: None)
  Receive Date: 20110804
  Receipt Date: 20110705
  Transmission Date: 20111222
  Serious: Yes (Hospitalization)
  Sender: FDA-Public Use
  Company Number: US-SANOFI-AVENTIS-2011SA044557

PATIENT
  Age: 83 Year
  Sex: Female
  Weight: 59 kg

DRUGS (8)
  1. POTASSIUM CHLORIDE [Concomitant]
  2. CARVEDIOL [Concomitant]
     Route: 065
  3. FUROSEMIDE [Concomitant]
     Route: 065
  4. LISINOPRIL [Concomitant]
     Route: 065
  5. METFORMIN HCL [Concomitant]
  6. DRONEDARONE HCL [Suspect]
     Indication: ATRIAL FIBRILLATION
     Route: 048
     Dates: start: 20101222
  7. GLYBURIDE [Concomitant]
     Route: 065
  8. SYNTHROID [Concomitant]

REACTIONS (1)
  - CARDIAC FAILURE [None]
